FAERS Safety Report 8349680-9 (Version None)
Quarter: 2012Q2

REPORT INFORMATION
  Report Type: 
  Country: None (occurrence: None)
  Receive Date: 20120509
  Receipt Date: 20120509
  Transmission Date: 20120825
  Serious: Yes (Hospitalization)
  Sender: FDA-Public Use
  Company Number: None

PATIENT
  Sex: Female
  Weight: 73.5 kg

DRUGS (2)
  1. TAXOL [Suspect]
     Dosage: 978 MG
  2. CARBOPLATIN [Suspect]
     Dosage: 1255 MG

REACTIONS (7)
  - BACTERIAL TEST POSITIVE [None]
  - RESPIRATORY FAILURE [None]
  - PNEUMONIA [None]
  - SEPTIC SHOCK [None]
  - WEIGHT DECREASED [None]
  - LOBAR PNEUMONIA [None]
  - MENTAL STATUS CHANGES [None]
